FAERS Safety Report 7729628-8 (Version None)
Quarter: 2011Q3

REPORT INFORMATION
  Report Type: 
  Country: None (occurrence: None)
  Receive Date: 20110906
  Receipt Date: 20110825
  Transmission Date: 20111222
  Serious: Yes (Death)
  Sender: FDA-Public Use
  Company Number: JP-ELI_LILLY_AND_COMPANY-JP201106005449

PATIENT
  Sex: Female
  Weight: 40 kg

DRUGS (5)
  1. CELECOXIB [Concomitant]
     Dosage: 100 MG, BID
     Route: 048
     Dates: start: 20110209, end: 20110619
  2. OPALMON [Concomitant]
     Dosage: 1 DF, TID
     Route: 048
     Dates: start: 20110209, end: 20110525
  3. FORTEO [Suspect]
     Indication: OSTEOPOROSIS
     Dosage: 20 UG, UNK
     Route: 058
     Dates: start: 20110427, end: 20110618
  4. LANSOPRAZOLE [Concomitant]
     Dosage: 15 MG, QD
     Route: 048
     Dates: start: 20110209, end: 20110619
  5. NEUROTROPIN [Concomitant]
     Dosage: 2 DF, BID
     Route: 048
     Dates: start: 20110209, end: 20110525

REACTIONS (1)
  - DEATH [None]
